FAERS Safety Report 14210718 (Version 2)
Quarter: 2017Q4

REPORT INFORMATION
  Report Type: Report from Study
  Country: CO (occurrence: CO)
  Receive Date: 20171121
  Receipt Date: 20171218
  Transmission Date: 20180321
  Serious: Yes (Hospitalization)
  Sender: FDA-Public Use
  Company Number: CO-JNJFOC-20171123148

PATIENT
  Age: 59 Year
  Sex: Male
  Weight: 98 kg

DRUGS (1)
  1. STELARA [Suspect]
     Active Substance: USTEKINUMAB
     Indication: PSORIASIS
     Route: 058
     Dates: start: 20160805

REACTIONS (4)
  - Blood creatinine increased [Recovered/Resolved]
  - Coronary arterial stent insertion [Recovering/Resolving]
  - Catheterisation cardiac [Not Recovered/Not Resolved]
  - Urinary tract infection [Not Recovered/Not Resolved]

NARRATIVE: CASE EVENT DATE: 2017
